FAERS Safety Report 5096847-1 (Version None)
Quarter: 2006Q3

REPORT INFORMATION
  Report Type: 
  Country: None (occurrence: None)
  Receive Date: 20060901
  Receipt Date: 20060901
  Transmission Date: 20061208
  Serious: Yes (Life-Threatening, Hospitalization)
  Sender: FDA-Public Use
  Company Number: None

PATIENT
  Age: 63 Year
  Sex: Male
  Weight: 79 kg

DRUGS (10)
  1. HALOPERIDOL [Suspect]
     Indication: SCHIZOPHRENIA, PARANOID TYPE
     Dosage: 2MG PO HS
     Route: 048
     Dates: start: 20051229, end: 20060327
  2. ARIPIPRAZOLE  15MG (BMS) [Suspect]
     Indication: SCHIZOPHRENIA, PARANOID TYPE
     Dosage: 15 MG PO QAM
     Route: 048
     Dates: start: 20060315, end: 20060327
  3. DIVALPROEX XR [Concomitant]
  4. TRAZODONE HCL [Concomitant]
  5. LISINOPRIL [Concomitant]
  6. CARVEDILOL [Concomitant]
  7. METFORMIN [Concomitant]
  8. CLOPIDOGREL [Concomitant]
  9. OMEPRAZOLE [Concomitant]
  10. SIMVASTATIN [Concomitant]

REACTIONS (3)
  - DEHYDRATION [None]
  - NEUROLEPTIC MALIGNANT SYNDROME [None]
  - THERAPEUTIC RESPONSE DELAYED [None]
